FAERS Safety Report 9717177 (Version 2)
Quarter: 2013Q4

REPORT INFORMATION
  Report Type: Spontaneous
  Country: US (occurrence: US)
  Receive Date: 20131127
  Receipt Date: 20131206
  Transmission Date: 20140711
  Serious: Yes (Death, Hospitalization, Other)
  Sender: FDA-Public Use
  Company Number: US-B.I. PHARMACEUTICALS,INC./RIDGEFIELD-2013-BI-39389BP

PATIENT
  Age: 67 Year
  Sex: Female

DRUGS (20)
  1. TRADJENTA [Suspect]
     Indication: DIABETES MELLITUS
     Dosage: 5 MG
     Route: 048
     Dates: start: 201207
  2. MACROBID [Concomitant]
     Dosage: 100 MG
  3. LEVEMIR FLEXPEN [Concomitant]
  4. NOVOLIN R [Concomitant]
     Dosage: 20 ANZ
  5. VITAMIN D [Concomitant]
     Dosage: 3333.3333 U
  6. NORVASC [Concomitant]
     Dosage: 10 MG
  7. GABAPENTIN [Concomitant]
     Dosage: 100 MG
  8. HYDROCHLOROTHIAZID [Concomitant]
     Dosage: 25 MG
  9. TOPOROL [Concomitant]
     Dosage: 50 MG
  10. DOXAZOSIN [Concomitant]
     Dosage: 2 MG
  11. ZEMPLAR [Concomitant]
  12. TRAMADOL [Concomitant]
     Dosage: 300 MG
  13. FLECAINIDE [Concomitant]
     Dosage: 100 MG
  14. DIOVAN HCT [Concomitant]
  15. FLEXERIL [Concomitant]
     Dosage: PRN
  16. NITROFUANTOIN MACRO-MONO [Concomitant]
     Dosage: 100 MG
  17. KLONOPIN [Concomitant]
     Dosage: 10 MG
  18. TRADJENTA [Concomitant]
     Dosage: 5 MG
  19. HYDRALAZINE [Concomitant]
     Dosage: 20 MG
  20. BABY ASPIRIN [Concomitant]

REACTIONS (3)
  - Pulmonary oedema [Fatal]
  - Dyspnoea [Fatal]
  - Haemoptysis [Unknown]
